FAERS Safety Report 6253099-4 (Version None)
Quarter: 2009Q2

REPORT INFORMATION
  Report Type: 
  Country: None (occurrence: None)
  Receive Date: 20090629
  Receipt Date: 20090615
  Transmission Date: 20091009
  Serious: Yes (Hospitalization)
  Sender: FDA-Public Use
  Company Number: 2008-181666-NL

PATIENT
  Age: 36 Year
  Sex: Female
  Weight: 101.6 kg

DRUGS (3)
  1. NUVARING [Suspect]
  2. PENICILLIN [Concomitant]
  3. CALTRATE [Concomitant]

REACTIONS (9)
  - ABDOMINAL PAIN [None]
  - ANXIETY [None]
  - BLOOD GLUCOSE INCREASED [None]
  - CHEST DISCOMFORT [None]
  - DEEP VEIN THROMBOSIS [None]
  - DYSPNOEA [None]
  - HAEMORRHOIDS [None]
  - MUSCLE SPASMS [None]
  - URTICARIA [None]
